FAERS Safety Report 16065592 (Version 1)
Quarter: 2019Q1

REPORT INFORMATION
  Report Type: Spontaneous
  Country: US (occurrence: US)
  Receive Date: 20190313
  Receipt Date: 20190313
  Transmission Date: 20190418
  Serious: Yes (Other)
  Sender: FDA-Public Use
  Company Number: US-SA-2019SA064641

PATIENT
  Age: 30 Year
  Sex: Male

DRUGS (3)
  1. CISPLATIN. [Suspect]
     Active Substance: CISPLATIN
     Indication: NEOPLASM MALIGNANT
     Dosage: UNK UNK, QCY
  2. DOCETAXEL. [Suspect]
     Active Substance: DOCETAXEL
     Indication: NEOPLASM MALIGNANT
     Dosage: UNK UNK, QCY
  3. FLUOROURACIL. [Suspect]
     Active Substance: FLUOROURACIL
     Indication: NEOPLASM MALIGNANT
     Dosage: UNK UNK, QCY

REACTIONS (4)
  - Drug ineffective [Unknown]
  - Disease progression [Recovered/Resolved]
  - Hepatotoxicity [Unknown]
  - Condition aggravated [Unknown]

NARRATIVE: CASE EVENT DATE: 201809
